FAERS Safety Report 10409874 (Version 1)
Quarter: 2014Q3

REPORT INFORMATION
  Report Type: Spontaneous
  Country: US (occurrence: US)
  Receive Date: 20140826
  Receipt Date: 20140826
  Transmission Date: 20150326
  Serious: No
  Sender: FDA-Public Use
  Company Number: US-VIVUS-2014V1000334

PATIENT
  Age: 50 Year
  Sex: Male
  Weight: 118.04 kg

DRUGS (5)
  1. ACCUPRIL [Concomitant]
     Active Substance: QUINAPRIL HYDROCHLORIDE
  2. TESTOSTERONE INJECTIONS [Concomitant]
     Active Substance: TESTOSTERONE
  3. STENDRA [Suspect]
     Active Substance: AVANAFIL
     Route: 048
     Dates: start: 201405
  4. LITHIUM [Concomitant]
     Active Substance: LITHIUM CARBONATE
  5. MULTIVITAMINS [Concomitant]
     Active Substance: VITAMINS

REACTIONS (1)
  - Drug ineffective [Unknown]

NARRATIVE: CASE EVENT DATE: 201405
